FAERS Safety Report 9507266 (Version 1)
Quarter: 2013Q1

REPORT INFORMATION
  Report Type: Spontaneous
  Country: US (occurrence: None)
  Receive Date: 20130305
  Receipt Date: 20130305
  Transmission Date: 20140127
  Serious: Yes (Other)
  Sender: FDA-Public Use
  Company Number: 163-21880-12082812

PATIENT
  Age: 68 Year
  Sex: Female

DRUGS (1)
  1. REVLIMID (LENALIDOMIDE) (25 MILLIGRAM, CAPSULES) [Suspect]
     Indication: PLASMA CELL MYELOMA
     Dosage: 21 IN 28 D
     Dates: start: 20120718

REACTIONS (10)
  - Drug dose omission [None]
  - Peripheral coldness [None]
  - Pain [None]
  - Erythema [None]
  - Neuropathy peripheral [None]
  - Dysgeusia [None]
  - Constipation [None]
  - Feeling hot [None]
  - Oedema peripheral [None]
  - Somnolence [None]
